FAERS Safety Report 8477851-X (Version None)
Quarter: 2012Q2

REPORT INFORMATION
  Report Type: 
  Country: None (occurrence: None)
  Receive Date: 20120629
  Receipt Date: 20120622
  Transmission Date: 20120825
  Serious: Yes (Other)
  Sender: FDA-Public Use
  Company Number: US-PFIZER INC-2012151454

PATIENT

DRUGS (1)
  1. LYRICA [Suspect]
     Dosage: UNK

REACTIONS (5)
  - BACK INJURY [None]
  - BLINDNESS UNILATERAL [None]
  - NEOPLASM MALIGNANT [None]
  - DIABETES MELLITUS [None]
  - ATTENTION DEFICIT/HYPERACTIVITY DISORDER [None]
